FAERS Safety Report 16280597 (Version 1)
Quarter: 2019Q2

REPORT INFORMATION
  Report Type: Spontaneous
  Country: US (occurrence: US)
  Receive Date: 20190507
  Receipt Date: 20190507
  Transmission Date: 20190711
  Serious: No
  Sender: FDA-Public Use
  Company Number: US-ALVOGEN-2018-ALVOGEN-096512

PATIENT
  Sex: Female

DRUGS (2)
  1. SUTENT [Concomitant]
     Active Substance: SUNITINIB MALATE
     Indication: PRODUCT USED FOR UNKNOWN INDICATION
     Route: 048
     Dates: start: 20171028
  2. MACRODANTIN [Suspect]
     Active Substance: NITROFURANTOIN
     Indication: URINARY TRACT INFECTION

REACTIONS (2)
  - Fungal infection [Unknown]
  - Erythema [Unknown]
